FAERS Safety Report 6316852-4 (Version None)
Quarter: 2009Q3

REPORT INFORMATION
  Report Type: 
  Country: None (occurrence: None)
  Receive Date: 20090820
  Receipt Date: 20090813
  Transmission Date: 20100115
  Serious: Yes (Other)
  Sender: FDA-Public Use
  Company Number: GB-ROCHE-650765

PATIENT
  Age: 75 Year
  Sex: Female

DRUGS (7)
  1. TAMIFLU [Suspect]
     Indication: DRUG USE FOR UNKNOWN INDICATION
     Dosage: MEDICATION TAKEN FROM COMMUNITY PHARMACY.
     Route: 065
     Dates: start: 20090808, end: 20090808
  2. FUROSEMIDE [Concomitant]
  3. CO-CODAMOL [Concomitant]
  4. GLICLAZIDE [Concomitant]
  5. ASPIRIN [Concomitant]
  6. ROSIGLITAZONE [Concomitant]
  7. METFORMIN [Concomitant]

REACTIONS (1)
  - ABNORMAL BEHAVIOUR [None]
